FAERS Safety Report 6318606-1 (Version None)
Quarter: 2009Q3

REPORT INFORMATION
  Report Type: 
  Country: None (occurrence: None)
  Receive Date: 20090821
  Receipt Date: 20090817
  Transmission Date: 20100115
  Serious: Yes (Death, Other)
  Sender: FDA-Public Use
  Company Number: US-TEVA-203908USA

PATIENT
  Sex: Male

DRUGS (5)
  1. COPAXONE [Suspect]
     Indication: MULTIPLE SCLEROSIS
     Route: 058
     Dates: start: 20040101, end: 20050101
  2. COPAXONE [Concomitant]
  3. INTERFERON BETA [Suspect]
     Dates: start: 20060101, end: 20070101
  4. INTERFERON BETA-1A [Suspect]
     Dates: start: 20070101, end: 20080301
  5. MITOXANTRONE HYDROCHLORIDE [Suspect]

REACTIONS (1)
  - PNEUMONIA [None]
